FAERS Safety Report 9204730 (Version 1)
Quarter: 2013Q2

REPORT INFORMATION
  Report Type: Spontaneous
  Country: US (occurrence: US)
  Receive Date: 20130402
  Receipt Date: 20130402
  Transmission Date: 20140414
  Serious: Yes (Hospitalization)
  Sender: FDA-Public Use
  Company Number: US-GLAXOSMITHKLINE-A0774084A

PATIENT
  Age: 54 Year
  Sex: Female
  Weight: 77.3 kg

DRUGS (1)
  1. AVANDIA [Suspect]
     Indication: TYPE 2 DIABETES MELLITUS
     Dosage: 4MG PER DAY
     Route: 048
     Dates: start: 19991019, end: 20011220

REACTIONS (5)
  - Cerebrovascular accident [Not Recovered/Not Resolved]
  - Pyelonephritis [Unknown]
  - Transient ischaemic attack [Unknown]
  - Microangiopathy [Unknown]
  - Eyelid ptosis [Unknown]
